FAERS Safety Report 13662713 (Version 1)
Quarter: 2017Q2

REPORT INFORMATION
  Report Type: Spontaneous
  Country: US (occurrence: US)
  Receive Date: 20170616
  Receipt Date: 20170616
  Transmission Date: 20170830
  Serious: Yes (Other)
  Sender: FDA-Public Use
  Company Number: None

PATIENT
  Age: 62 Year
  Sex: Male
  Weight: 108 kg

DRUGS (8)
  1. KLOR-CON ER (GENERIC-PORTS CHLORIDE ER) [Concomitant]
  2. IRBESARTAN. [Concomitant]
     Active Substance: IRBESARTAN
  3. CARVEDILOL. [Concomitant]
     Active Substance: CARVEDILOL
  4. NATURE MADE D3 [Concomitant]
  5. PRAVASTATIN. [Concomitant]
     Active Substance: PRAVASTATIN
  6. NIFEDIPINE. [Suspect]
     Active Substance: NIFEDIPINE
     Indication: HYPERTENSION
     Dosage: ?          QUANTITY:1 TABLET(S);?
     Route: 048
     Dates: start: 20130718, end: 20140526
  7. CLONIDINE. [Concomitant]
     Active Substance: CLONIDINE
  8. HYDROCHLOROTHIAZIDE. [Suspect]
     Active Substance: HYDROCHLOROTHIAZIDE

REACTIONS (6)
  - Joint swelling [None]
  - Gingival swelling [None]
  - Tooth loss [None]
  - Peripheral swelling [None]
  - Oedema mucosal [None]
  - Gingival disorder [None]

NARRATIVE: CASE EVENT DATE: 20130718
